FAERS Safety Report 8032147-5 (Version None)
Quarter: 2012Q1

REPORT INFORMATION
  Report Type: 
  Country: None (occurrence: None)
  Receive Date: 20120109
  Receipt Date: 20120106
  Transmission Date: 20120608
  Serious: Yes (Death, Hospitalization)
  Sender: FDA-Public Use
  Company Number: GB-AMGEN-KDC419854

PATIENT
  Age: 49 Year
  Sex: Female
  Weight: 63.6 kg

DRUGS (6)
  1. AMOXICILLIN [Concomitant]
     Indication: EAR INFECTION
     Dosage: UNK UNK, UNK
     Route: 048
     Dates: start: 20100614, end: 20100621
  2. PANITUMUMAB [Suspect]
     Indication: COLORECTAL CANCER METASTATIC
     Dosage: UNK
     Route: 042
     Dates: start: 20100524, end: 20100621
  3. ACETAMINOPHEN [Concomitant]
     Indication: MUSCULOSKELETAL STIFFNESS
     Route: 048
     Dates: start: 20080512
  4. SENNA [Concomitant]
     Indication: CONSTIPATION
     Route: 048
     Dates: start: 20100513
  5. BUPRENORPHINE [Concomitant]
     Indication: PAIN
     Dosage: UNK UNK, UNK
     Route: 061
     Dates: start: 20091215
  6. DEXAMETHASONE [Concomitant]
     Indication: DECREASED APPETITE
     Route: 048
     Dates: start: 20090819

REACTIONS (2)
  - COLON CANCER METASTATIC [None]
  - HYPERKALAEMIA [None]
